FAERS Safety Report 7647078-X (Version None)
Quarter: 2011Q3

REPORT INFORMATION
  Report Type: 
  Country: None (occurrence: None)
  Receive Date: 20110801
  Receipt Date: 20110504
  Transmission Date: 20111222
  Serious: Yes (Hospitalization, Other)
  Sender: FDA-Public Use
  Company Number: US-BAYER-200811167NA

PATIENT
  Age: 28 Year
  Sex: Female

DRUGS (6)
  1. BETASERON [Suspect]
     Dosage: 0.5 ML, QOD
     Route: 058
  2. ACETAMINOPHEN [Concomitant]
  3. BETASERON [Suspect]
     Indication: MULTIPLE SCLEROSIS
     Dosage: 8 MIU, QOD
     Route: 058
     Dates: start: 20070612, end: 20090227
  4. BETASERON [Suspect]
     Dosage: 6 MIU, QOD
     Route: 058
     Dates: start: 20110124
  5. EXCEDRIN (MIGRAINE) [Concomitant]
     Indication: PREMEDICATION
  6. BETASERON [Suspect]
     Dosage: 8 MIU, QOD
     Route: 058
     Dates: end: 20110610

REACTIONS (20)
  - INJECTION SITE ULCER [None]
  - MOTOR DYSFUNCTION [None]
  - ELECTROCARDIOGRAM ABNORMAL [None]
  - RHINORRHOEA [None]
  - HAEMATEMESIS [None]
  - INJECTION SITE HAEMATOMA [None]
  - HIATUS HERNIA [None]
  - BRONCHITIS [None]
  - MIGRAINE [None]
  - INJECTION SITE HAEMORRHAGE [None]
  - PUNCTURE SITE HAEMORRHAGE [None]
  - ENDOMETRIOSIS [None]
  - INSOMNIA [None]
  - PAIN [None]
  - PYREXIA [None]
  - EXTRASYSTOLES [None]
  - INTERVERTEBRAL DISC PROTRUSION [None]
  - VAGINAL HAEMORRHAGE [None]
  - HOT FLUSH [None]
  - FATIGUE [None]
